FAERS Safety Report 10478781 (Version 1)
Quarter: 2014Q3

REPORT INFORMATION
  Report Type: Spontaneous
  Country: US (occurrence: US)
  Receive Date: 20140926
  Receipt Date: 20140926
  Transmission Date: 20150326
  Serious: Yes (Hospitalization, Other)
  Sender: FDA-Public Use
  Company Number: US-TEVA-511350USA

PATIENT
  Age: 18 Year
  Sex: Male
  Weight: 79.45 kg

DRUGS (2)
  1. CLOZAPINE. [Suspect]
     Active Substance: CLOZAPINE
     Dosage: DOSE AND FREQUENCY NOT PROVIDED
     Dates: start: 201212
  2. CLOZAPINE. [Suspect]
     Active Substance: CLOZAPINE
     Indication: SCHIZOAFFECTIVE DISORDER BIPOLAR TYPE
     Dosage: DOSE AND FREQUENCY NOT PROVIDED
     Dates: start: 201109, end: 201206

REACTIONS (5)
  - Laboratory test abnormal [Unknown]
  - Cellulitis [Unknown]
  - Pyrexia [Unknown]
  - Pharyngitis streptococcal [Unknown]
  - Anaemia [Unknown]

NARRATIVE: CASE EVENT DATE: 201208
